APPROVED DRUG PRODUCT: FENOPROFEN CALCIUM
Active Ingredient: FENOPROFEN CALCIUM
Strength: EQ 200MG BASE
Dosage Form/Route: CAPSULE;ORAL
Application: A072437 | Product #001
Applicant: PAR PHARMACEUTICAL INC
Approved: Aug 22, 1988 | RLD: No | RS: No | Type: DISCN